FAERS Safety Report 7577033-X (Version None)
Quarter: 2011Q2

REPORT INFORMATION
  Report Type: 
  Country: None (occurrence: None)
  Receive Date: 20110628
  Receipt Date: 20110624
  Transmission Date: 20111010
  Serious: No
  Sender: FDA-Public Use
  Company Number: US-PFIZER INC-2011141204

PATIENT
  Sex: Female
  Weight: 54.422 kg

DRUGS (7)
  1. NAMENDA [Concomitant]
     Indication: BIPOLAR DISORDER
     Dosage: 10 MG, 2X/DAY
     Route: 048
  2. ADVIL LIQUI-GELS [Suspect]
     Dosage: 200 MG, UNK
  3. HALOPERIDOL [Concomitant]
     Indication: BIPOLAR DISORDER
     Dosage: 5 MG, DAILY
  4. ACTOS [Concomitant]
     Indication: TYPE 2 DIABETES MELLITUS
     Dosage: 45 MG, DAILY
     Route: 048
     Dates: start: 19960101
  5. SEROQUEL [Concomitant]
     Indication: BIPOLAR DISORDER
     Dosage: ONE OR TWO TABLETS OF 300 MG DAILY
     Route: 048
  6. BENZTROPINE MESYLATE [Concomitant]
     Indication: BIPOLAR DISORDER
     Dosage: 1 MG, 3X/DAY
  7. ADVIL LIQUI-GELS [Suspect]
     Indication: ARTHRALGIA
     Dosage: 200 MG, THREE TO FOUR TIMES A DAY
     Route: 048
     Dates: start: 20110501

REACTIONS (2)
  - ABDOMINAL DISCOMFORT [None]
  - DYSPEPSIA [None]
